FAERS Safety Report 5870332-9 (Version None)
Quarter: 2008Q3

REPORT INFORMATION
  Report Type: 
  Country: None (occurrence: None)
  Receive Date: 20080902
  Receipt Date: 20080820
  Transmission Date: 20090109
  Serious: Yes (Hospitalization)
  Sender: FDA-Public Use
  Company Number: 237082J08USA

PATIENT
  Age: 68 Year
  Sex: Female
  Weight: 90.7194 kg

DRUGS (10)
  1. REBIF [Suspect]
     Indication: MULTIPLE SCLEROSIS
     Dosage: 44 MCG, 3 IN 1 WEEKS, SUBCUTANEOUS
     Route: 058
     Dates: start: 20050208
  2. HUMALOG [Concomitant]
  3. PREVACID [Concomitant]
  4. METFORMIN HCL [Concomitant]
  5. PLAVIX [Concomitant]
  6. IMDUR [Concomitant]
  7. PROZAC [Concomitant]
  8. XANAX [Concomitant]
  9. DITROPAN [Concomitant]
  10. LASIX [Concomitant]

REACTIONS (5)
  - AMNESIA [None]
  - ANKLE FRACTURE [None]
  - DIZZINESS [None]
  - FALL [None]
  - THERMAL BURN [None]
